FAERS Safety Report 4876875-9 (Version None)
Quarter: 2006Q1

REPORT INFORMATION
  Report Type: 
  Country: None (occurrence: None)
  Receive Date: 20060109
  Receipt Date: 20060109
  Transmission Date: 20060701
  Serious: Yes (Hospitalization)
  Sender: FDA-Public Use
  Company Number: None

PATIENT
  Age: 63 Year
  Sex: Female
  Weight: 64.9 kg

DRUGS (2)
  1. TAXOTERE [Suspect]
     Indication: NON-SMALL CELL LUNG CANCER METASTATIC
     Dosage: 45.5 MG QWK X 3 IN 4 WK. IV DRIP
     Route: 041
     Dates: start: 20050817, end: 20051116
  2. TARGRETIN [Suspect]
     Dosage: 10 TABS QD PO
     Route: 048
     Dates: start: 20050817, end: 20051123

REACTIONS (10)
  - ARTERIAL THROMBOSIS LIMB [None]
  - ASTHENIA [None]
  - DEEP VEIN THROMBOSIS [None]
  - DISEASE PROGRESSION [None]
  - FAILURE TO THRIVE [None]
  - FLATULENCE [None]
  - GALLBLADDER FISTULA [None]
  - INTESTINAL FISTULA [None]
  - LEUKOCYTOSIS [None]
  - VENA CAVA THROMBOSIS [None]
